FAERS Safety Report 9432940 (Version 3)
Quarter: 2013Q4

REPORT INFORMATION
  Report Type: Report from Study
  Country: FR (occurrence: FR)
  Receive Date: 20130731
  Receipt Date: 20131001
  Transmission Date: 20140711
  Serious: Yes (Other)
  Sender: FDA-Public Use
  Company Number: FR-ACTELION-A-CH2013-86265

PATIENT
  Sex: Female

DRUGS (7)
  1. TRACLEER [Suspect]
     Indication: MATERNAL EXPOSURE DURING PREGNANCY
     Dosage: 125 MG, BID
     Route: 064
     Dates: start: 20090623, end: 20120410
  2. TRACLEER [Suspect]
     Dosage: 62.5 MG, BID
     Route: 064
     Dates: start: 20090406, end: 20090622
  3. HYDROXYCHLOROQUINE [Concomitant]
     Route: 064
  4. PREDNISONE [Concomitant]
     Route: 064
  5. CALCITE D [Concomitant]
     Route: 064
  6. ACETYLSALICYLIC ACID [Concomitant]
  7. PROGESTERONE [Concomitant]
     Route: 064

REACTIONS (3)
  - Foetal growth restriction [Recovered/Resolved]
  - Placental disorder [Unknown]
  - Premature baby [Unknown]
